FAERS Safety Report 16717553 (Version 1)
Quarter: 2019Q3

REPORT INFORMATION
  Report Type: Spontaneous
  Country: US (occurrence: US)
  Receive Date: 20190819
  Receipt Date: 20190819
  Transmission Date: 20191005
  Serious: No
  Sender: FDA-Public Use
  Company Number: US-SA-2019SA227413

PATIENT
  Sex: Female

DRUGS (1)
  1. LANTUS SOLOSTAR [Suspect]
     Active Substance: INSULIN GLARGINE
     Dosage: 12 UNITS IN THE MORNING AND 28 UNITS AT NIGHT
     Route: 065

REACTIONS (3)
  - Product dose omission [Unknown]
  - Device operational issue [Unknown]
  - Inappropriate schedule of product administration [Unknown]
